FAERS Safety Report 17827978 (Version 1)
Quarter: 2020Q2

REPORT INFORMATION
  Report Type: Spontaneous
  Country: US (occurrence: US)
  Receive Date: 20200526
  Receipt Date: 20200526
  Transmission Date: 20200714
  Serious: Yes (Other)
  Sender: FDA-Public Use
  Company Number: None

PATIENT
  Age: 52 Year
  Sex: Female
  Weight: 72 kg

DRUGS (10)
  1. VITAMIN  B [Concomitant]
     Active Substance: VITAMIN B
  2. GUMMIE [Concomitant]
  3. PAPAVERINE [Suspect]
     Active Substance: PAPAVERINE
  4. MELOXICAM. [Concomitant]
     Active Substance: MELOXICAM
  5. LISINOPRIL. [Concomitant]
     Active Substance: LISINOPRIL
  6. OXYBUTIN [Concomitant]
     Active Substance: OXYBUTYNIN
  7. GABAPENTIN. [Concomitant]
     Active Substance: GABAPENTIN
  8. MILK THISTLE [Concomitant]
     Active Substance: DIETARY SUPPLEMENT\HERBALS\MILK THISTLE
  9. POTTASIUM [Concomitant]
  10. CALCIUM [Concomitant]
     Active Substance: CALCIUM

REACTIONS (2)
  - Heart rate increased [None]
  - Headache [None]

NARRATIVE: CASE EVENT DATE: 20200516
